FAERS Safety Report 11494027 (Version 1)
Quarter: 2015Q3

REPORT INFORMATION
  Report Type: Spontaneous
  Country: US (occurrence: US)
  Receive Date: 20150911
  Receipt Date: 20150911
  Transmission Date: 20151125
  Serious: No
  Sender: FDA-Public Use
  Company Number: US-ROCHE-1024917

PATIENT
  Sex: Male

DRUGS (3)
  1. PEGASYS [Suspect]
     Active Substance: PEGINTERFERON ALFA-2A
     Indication: HEPATITIS C
     Route: 065
  2. COPEGUS [Suspect]
     Active Substance: RIBAVIRIN
     Indication: HEPATITIS C
     Route: 065
  3. GLIPIZIDE. [Concomitant]
     Active Substance: GLIPIZIDE
     Indication: DIABETES MELLITUS
     Route: 065

REACTIONS (9)
  - Anger [Unknown]
  - Rash [Unknown]
  - Fatigue [Unknown]
  - Diabetes mellitus [Unknown]
  - Bipolar disorder [Unknown]
  - Pneumonia bacterial [Unknown]
  - Muscle spasms [Unknown]
  - Hypersomnia [Unknown]
  - Arthralgia [Unknown]
